FAERS Safety Report 10312016 (Version 1)
Quarter: 2014Q3

REPORT INFORMATION
  Report Type: Report from Study
  Country: US (occurrence: US)
  Receive Date: 20140717
  Receipt Date: 20140717
  Transmission Date: 20150326
  Serious: Yes (Life-Threatening, Hospitalization)
  Sender: FDA-Public Use
  Company Number: US-009507513-1407USA007420

PATIENT
  Age: 30 Year
  Sex: Female
  Weight: 48.9 kg

DRUGS (3)
  1. VORINOSTAT [Suspect]
     Active Substance: VORINOSTAT
     Indication: ACUTE MYELOID LEUKAEMIA
     Dosage: CYCLE 1
     Route: 048
     Dates: start: 20140605, end: 20140607
  2. CYTARABINE. [Suspect]
     Active Substance: CYTARABINE
     Indication: ACUTE MYELOID LEUKAEMIA
     Dosage: 750MG/M2/DAY CONTINUOUS IV INFUSION ON DAYS 4-6, CYCLE 1
     Route: 042
     Dates: start: 20140608, end: 20140611
  3. IDARUBICIN [Suspect]
     Active Substance: IDARUBICIN
     Indication: ACUTE MYELOID LEUKAEMIA
     Dosage: 8MG/M2/DAY IV OVER 15 MIN ON DAYS 4-5, CYCLE 1
     Route: 042
     Dates: start: 20140608, end: 20140610

REACTIONS (4)
  - Hypotension [Recovering/Resolving]
  - Sepsis [Recovered/Resolved]
  - Lung infection [Recovering/Resolving]
  - Sinus tachycardia [Recovering/Resolving]

NARRATIVE: CASE EVENT DATE: 20140707
